FAERS Safety Report 17360950 (Version 2)
Quarter: 2020Q1

REPORT INFORMATION
  Report Type: Spontaneous
  Country: US (occurrence: US)
  Receive Date: 20200203
  Receipt Date: 20200211
  Transmission Date: 20200409
  Serious: Yes (Other)
  Sender: FDA-Public Use
  Company Number: US-AMERICAN REGENT INC-2020000245

PATIENT
  Age: 61 Year
  Sex: Female

DRUGS (2)
  1. INJECTAFER [Suspect]
     Active Substance: FERRIC CARBOXYMALTOSE
     Indication: ANAEMIA
     Dosage: UNK UNK, SINGLE
     Route: 042
     Dates: start: 20191023, end: 20191023
  2. INJECTAFER [Suspect]
     Active Substance: FERRIC CARBOXYMALTOSE
     Indication: GASTROINTESTINAL HAEMORRHAGE
     Dosage: UNK UNK, SINGLE
     Route: 042
     Dates: start: 20191030, end: 20191030

REACTIONS (3)
  - Nausea [Recovered/Resolved]
  - Infusion site discolouration [Not Recovered/Not Resolved]
  - Infusion site extravasation [Recovered/Resolved]

NARRATIVE: CASE EVENT DATE: 201910
